FAERS Safety Report 7409295-3 (Version None)
Quarter: 2011Q2

REPORT INFORMATION
  Report Type: 
  Country: None (occurrence: None)
  Receive Date: 20110412
  Receipt Date: 20110401
  Transmission Date: 20111010
  Serious: Yes (Life-Threatening)
  Sender: FDA-Public Use
  Company Number: B0711116A

PATIENT
  Sex: Female
  Weight: 42 kg

DRUGS (9)
  1. GRAN [Concomitant]
     Dates: start: 20070512, end: 20070526
  2. GASPORT [Concomitant]
     Dosage: 20MG PER DAY
     Route: 048
     Dates: start: 20070508
  3. SIGMART [Concomitant]
     Dosage: 10MG PER DAY
     Route: 048
     Dates: start: 20070508
  4. MYSLEE [Concomitant]
     Route: 048
     Dates: start: 20070509
  5. AZELASTINE HCL [Concomitant]
     Dosage: 2MG PER DAY
     Route: 048
     Dates: start: 20070508, end: 20070625
  6. MUCOSTA [Concomitant]
     Dosage: 3IUAX PER DAY
     Route: 048
     Dates: start: 20070508, end: 20070625
  7. RAMELTEON [Concomitant]
     Dosage: .3MG PER DAY
     Route: 042
     Dates: start: 20070508, end: 20070509
  8. ALKERAN [Suspect]
     Indication: STEM CELL TRANSPLANT
     Dosage: 100MGM2 PER DAY
     Route: 042
     Dates: start: 20070508, end: 20070509
  9. DUROTEP [Concomitant]
     Route: 062
     Dates: start: 20070508

REACTIONS (1)
  - SEPTIC SHOCK [None]
